FAERS Safety Report 9484408 (Version 1)
Quarter: 2013Q3

REPORT INFORMATION
  Report Type: Spontaneous
  Country: US (occurrence: US)
  Receive Date: 20130828
  Receipt Date: 20130828
  Transmission Date: 20140515
  Serious: Yes (Hospitalization)
  Sender: FDA-Public Use
  Company Number: US-AMGEN-KDL419765

PATIENT
  Age: 29 Year
  Sex: Female

DRUGS (2)
  1. ENBREL [Suspect]
     Indication: RHEUMATOID ARTHRITIS
     Dosage: 50 MG, QWK
     Route: 058
     Dates: start: 2004
  2. ENBREL [Suspect]
     Indication: PRODUCT USED FOR UNKNOWN INDICATION

REACTIONS (7)
  - Pre-eclampsia [Unknown]
  - Premature separation of placenta [Unknown]
  - Premature delivery [Unknown]
  - Arthralgia [Recovered/Resolved]
  - Arthritis [Recovered/Resolved]
  - Joint swelling [Recovered/Resolved]
  - Therapeutic response decreased [Recovered/Resolved]
